FAERS Safety Report 16528394 (Version 1)
Quarter: 2019Q3

REPORT INFORMATION
  Report Type: Spontaneous
  Country: US (occurrence: US)
  Receive Date: 20190704
  Receipt Date: 20190704
  Transmission Date: 20191004
  Serious: No
  Sender: FDA-Public Use
  Company Number: US-GW PHARMA-201905USGW1284

PATIENT

DRUGS (4)
  1. ONFI [Suspect]
     Active Substance: CLOBAZAM
     Dosage: INITIAL DOSE UNKNOWN
     Route: 065
  2. BANZEL [Suspect]
     Active Substance: RUFINAMIDE
     Indication: PRODUCT USED FOR UNKNOWN INDICATION
     Dosage: UNK
     Route: 065
     Dates: end: 2019
  3. EPIDIOLEX [Suspect]
     Active Substance: CANNABIDIOL
     Indication: LENNOX-GASTAUT SYNDROME
     Dosage: 500 MILLIGRAM, BID
     Route: 048
     Dates: start: 20181204
  4. ONFI [Suspect]
     Active Substance: CLOBAZAM
     Indication: PRODUCT USED FOR UNKNOWN INDICATION
     Dosage: 20 MILLIGRAM, BID (LOWERED DOSE)
     Route: 065

REACTIONS (5)
  - Depression [Unknown]
  - Fatigue [Unknown]
  - Weight increased [Unknown]
  - Depressed mood [Unknown]
  - Somnolence [Unknown]

NARRATIVE: CASE EVENT DATE: 20190301
